FAERS Safety Report 5155817-5 (Version None)
Quarter: 2006Q4

REPORT INFORMATION
  Report Type: 
  Country: None (occurrence: None)
  Receive Date: 20061113
  Receipt Date: 20061026
  Transmission Date: 20070319
  Serious: No
  Sender: FDA-Public Use
  Company Number: TPA2006A01759

PATIENT
  Age: 40 Year
  Sex: Female
  Weight: 95.2554 kg

DRUGS (7)
  1. ACTOS [Suspect]
     Indication: DIABETES MELLITUS NON-INSULIN-DEPENDENT
     Dosage: 15 MG, 1 IN 1 D, PER ORAL ; 1 IN 1 D PER ORAL
     Route: 048
     Dates: start: 20060801, end: 20060922
  2. ACTOS [Suspect]
     Indication: DIABETES MELLITUS NON-INSULIN-DEPENDENT
     Dosage: 15 MG, 1 IN 1 D, PER ORAL ; 1 IN 1 D PER ORAL
     Route: 048
     Dates: start: 20060901
  3. ZELNORM [Concomitant]
  4. TRIAM/HCTZ (HYDROCHLOROTHIAZIDE, TRIAMTERENE) [Concomitant]
  5. PAXIL [Concomitant]
  6. GEODON [Concomitant]
  7. TRAZODONE HCL [Concomitant]

REACTIONS (4)
  - DRUG DISPENSING ERROR [None]
  - FATIGUE [None]
  - INCORRECT DOSE ADMINISTERED [None]
  - SOMNOLENCE [None]
